FAERS Safety Report 7226112-5 (Version None)
Quarter: 2011Q1

REPORT INFORMATION
  Report Type: 
  Country: None (occurrence: None)
  Receive Date: 20110114
  Receipt Date: 20110112
  Transmission Date: 20110831
  Serious: Yes (Hospitalization)
  Sender: FDA-Public Use
  Company Number: US-SP-2011-00173

PATIENT
  Sex: Male

DRUGS (1)
  1. THERACYS [Suspect]
     Indication: BLADDER CANCER
     Route: 043
     Dates: start: 20100601, end: 20100601

REACTIONS (4)
  - RENAL FAILURE ACUTE [None]
  - URINARY TRACT INFECTION [None]
  - CELL MARKER [None]
  - SEPSIS [None]
